FAERS Safety Report 19724375 (Version 1)
Quarter: 2021Q3

REPORT INFORMATION
  Report Type: Spontaneous
  Country: GB (occurrence: GB)
  Receive Date: 20210819
  Receipt Date: 20210819
  Transmission Date: 20211014
  Serious: Yes (Other)
  Sender: FDA-Public Use
  Company Number: GB-MYLANLABS-2021M1052908

PATIENT
  Age: 58 Year
  Sex: Male
  Weight: 72 kg

DRUGS (3)
  1. BRILIQUE [Suspect]
     Active Substance: TICAGRELOR
     Indication: ARTERIAL THROMBOSIS
  2. BISOPROLOL [Suspect]
     Active Substance: BISOPROLOL
     Indication: HEART RATE ABNORMAL
     Dosage: 1.25 MILLIGRAM, QD
     Route: 048
     Dates: start: 20210613, end: 20210619
  3. BRILIQUE [Suspect]
     Active Substance: TICAGRELOR
     Indication: STENT PLACEMENT
     Dosage: 90 MILLIGRAM, BID
     Route: 048
     Dates: start: 20210613, end: 20210618

REACTIONS (5)
  - Dizziness [Recovered/Resolved]
  - Heart rate decreased [Recovered/Resolved]
  - Constipation [Recovered/Resolved]
  - Lethargy [Recovered/Resolved]
  - Contusion [Recovered/Resolved]

NARRATIVE: CASE EVENT DATE: 20210614
